FAERS Safety Report 7075739-2 (Version None)
Quarter: 2010Q4

REPORT INFORMATION
  Report Type: 
  Country: None (occurrence: None)
  Receive Date: 20101101
  Receipt Date: 20101020
  Transmission Date: 20110411
  Serious: Yes (Hospitalization, Other)
  Sender: FDA-Public Use
  Company Number: US-BIOGENIDEC-2010BI036937

PATIENT
  Age: 45 Year
  Sex: Male

DRUGS (3)
  1. TYSABRI [Suspect]
     Indication: MULTIPLE SCLEROSIS
     Route: 042
     Dates: start: 20081223
  2. AMPYRA [Concomitant]
     Dates: start: 20101001, end: 20101001
  3. WELLBUTRIN [Concomitant]
     Dates: start: 20101001, end: 20101001

REACTIONS (1)
  - CONVULSION [None]
